FAERS Safety Report 25872562 (Version 2)
Quarter: 2025Q4

REPORT INFORMATION
  Report Type: Spontaneous
  Country: US (occurrence: US)
  Receive Date: 20251002
  Receipt Date: 20251022
  Transmission Date: 20260118
  Serious: Yes (Death, Hospitalization)
  Sender: TEVA
  Company Number: US-TEVA-VS-3375867

PATIENT
  Age: 30 Year
  Sex: Female

DRUGS (7)
  1. ETOPOSIDE [Suspect]
     Active Substance: ETOPOSIDE
     Indication: Haemophagocytic lymphohistiocytosis
     Route: 065
     Dates: start: 20241213
  2. ETOPOSIDE [Suspect]
     Active Substance: ETOPOSIDE
     Indication: Haemophagocytic lymphohistiocytosis
     Dosage: SECOND DOSE
     Route: 065
     Dates: start: 20241216
  3. ETOPOSIDE [Suspect]
     Active Substance: ETOPOSIDE
     Indication: Haemophagocytic lymphohistiocytosis
     Dosage: THIRD DOSE
     Route: 065
     Dates: start: 20241220
  4. IMMUNE GLOBULIN NOS [Suspect]
     Active Substance: IMMUNE GLOBULIN NOS
     Indication: Autoimmune haemolytic anaemia
     Dosage: 1 G/KG ? 5 DOSES
     Route: 042
     Dates: start: 2024
  5. DEXAMETHASONE [Suspect]
     Active Substance: DEXAMETHASONE
     Indication: Haemophagocytic lymphohistiocytosis
     Route: 042
     Dates: start: 20241213
  6. VINCRISTINE [Suspect]
     Active Substance: VINCRISTINE
     Indication: Salvage therapy
     Route: 065
     Dates: start: 20241219
  7. RITUXIMAB [Suspect]
     Active Substance: RITUXIMAB
     Indication: Autoimmune haemolytic anaemia
     Dosage: 375 MG/M2 WEEKLY ? 4
     Route: 065
     Dates: start: 2024

REACTIONS (10)
  - Neutropenia [Fatal]
  - Acute respiratory distress syndrome [Unknown]
  - Shock haemorrhagic [Fatal]
  - Thrombocytopenia [Unknown]
  - Cytomegalovirus infection [Unknown]
  - Respiratory failure [Unknown]
  - Pneumonia [Unknown]
  - Drug ineffective [Unknown]
  - Deep vein thrombosis [Unknown]
  - Acute myocardial infarction [Unknown]

NARRATIVE: CASE EVENT DATE: 20240101
